FAERS Safety Report 7064241-X (Version None)
Quarter: 2010Q4

REPORT INFORMATION
  Report Type: 
  Country: None (occurrence: None)
  Receive Date: 20101027
  Receipt Date: 20101014
  Transmission Date: 20110411
  Serious: Yes (Hospitalization)
  Sender: FDA-Public Use
  Company Number: CA-ELI_LILLY_AND_COMPANY-CA201010003604

PATIENT
  Age: 80 Year
  Sex: Female

DRUGS (4)
  1. FORTEO [Suspect]
     Indication: OSTEOPOROSIS
     Dosage: 20 UG, DAILY (1/D)
     Route: 058
     Dates: start: 20050302
  2. FORTEO [Suspect]
     Dosage: 20 UG, DAILY (1/D)
     Dates: start: 20100924
  3. WARFARIN SODIUM [Concomitant]
  4. DIURETICS [Concomitant]

REACTIONS (9)
  - ABDOMINAL PAIN UPPER [None]
  - ACTIVITIES OF DAILY LIVING IMPAIRED [None]
  - DECREASED APPETITE [None]
  - DIZZINESS [None]
  - DRY MOUTH [None]
  - DYSPNOEA [None]
  - FEELING ABNORMAL [None]
  - MOBILITY DECREASED [None]
  - MUSCULOSKELETAL CHEST PAIN [None]
